FAERS Safety Report 19610408 (Version 1)
Quarter: 2021Q3

REPORT INFORMATION
  Report Type: Spontaneous
  Country: CN (occurrence: CN)
  Receive Date: 20210726
  Receipt Date: 20210726
  Transmission Date: 20211014
  Serious: Yes (Other)
  Sender: FDA-Public Use
  Company Number: CN-BAYER-2021-179305

PATIENT
  Age: 76 Year
  Sex: Male

DRUGS (4)
  1. STIVARGA [Suspect]
     Active Substance: REGORAFENIB
     Indication: HEPATOCELLULAR CARCINOMA
     Dosage: 160 MG, QD
     Route: 048
  2. GLYPICAN?3 PEPTIDE VACCINE [Concomitant]
     Indication: HEPATOCELLULAR CARCINOMA
  3. TISLELIZUMAB [Concomitant]
     Active Substance: TISLELIZUMAB
     Dosage: UNK
     Dates: start: 202004
  4. CYTOKINE INDUCED KILLER CELLS [Concomitant]
     Active Substance: INVESTIGATIONAL PRODUCT
     Indication: HEPATOCELLULAR CARCINOMA

REACTIONS (1)
  - Hepatocellular carcinoma [None]

NARRATIVE: CASE EVENT DATE: 202004
